FAERS Safety Report 17799804 (Version 1)
Quarter: 2020Q2

REPORT INFORMATION
  Report Type: Spontaneous
  Country: US (occurrence: US)
  Receive Date: 20200518
  Receipt Date: 20200518
  Transmission Date: 20200714
  Serious: Yes (Death, Hospitalization)
  Sender: FDA-Public Use
  Company Number: US-BAYER-2016-041884

PATIENT
  Age: 70 Year
  Sex: Female

DRUGS (7)
  1. XARELTO [Suspect]
     Active Substance: RIVAROXABAN
     Indication: CEREBROVASCULAR ACCIDENT PROPHYLAXIS
     Dosage: UNK
     Route: 048
     Dates: start: 2015
  2. ASPIRIN (CARDIO) [Suspect]
     Active Substance: ASPIRIN
     Indication: BLOOD CHOLESTEROL ABNORMAL
     Dosage: UNK, QD
     Route: 065
  3. XARELTO [Suspect]
     Active Substance: RIVAROXABAN
     Indication: THROMBOSIS PROPHYLAXIS
     Dosage: 20 MG, QD
     Route: 048
     Dates: start: 20150830, end: 20151016
  4. XARELTO [Suspect]
     Active Substance: RIVAROXABAN
     Indication: ATRIAL FIBRILLATION
     Dosage: UNK
     Route: 048
     Dates: start: 201505
  5. ELIQUIS [Suspect]
     Active Substance: APIXABAN
     Indication: ATRIAL FIBRILLATION
     Dosage: 5 MG, UNK
     Dates: start: 201508
  6. XARELTO [Suspect]
     Active Substance: RIVAROXABAN
     Indication: THROMBOSIS PROPHYLAXIS
     Dosage: 20 MG
     Route: 048
     Dates: start: 20150806
  7. PLAVIX [Suspect]
     Active Substance: CLOPIDOGREL BISULFATE
     Indication: PRODUCT USED FOR UNKNOWN INDICATION
     Dosage: 75 MG, QD
     Route: 048

REACTIONS (1)
  - Gastrointestinal haemorrhage [Recovering/Resolving]

NARRATIVE: CASE EVENT DATE: 20150830
